FAERS Safety Report 24133110 (Version 2)
Quarter: 2024Q3

REPORT INFORMATION
  Report Type: Spontaneous
  Country: US (occurrence: US)
  Receive Date: 20240724
  Receipt Date: 20240803
  Transmission Date: 20241016
  Serious: No
  Sender: ABBVIE
  Company Number: US-ABBVIE-5850327

PATIENT
  Age: 82 Year
  Sex: Female

DRUGS (1)
  1. COMBIGAN [Suspect]
     Active Substance: BRIMONIDINE TARTRATE\TIMOLOL MALEATE
     Indication: Product used for unknown indication
     Dosage: BRIMONIDINE 2MG/ML;TIMOLOL 6.8MG/ML
     Route: 047

REACTIONS (4)
  - Ocular hyperaemia [Unknown]
  - Drug hypersensitivity [Unknown]
  - Drug ineffective [Unknown]
  - Eye swelling [Unknown]

NARRATIVE: CASE EVENT DATE: 20240718
